FAERS Safety Report 17144072 (Version 2)
Quarter: 2019Q4

REPORT INFORMATION
  Report Type: Spontaneous
  Country: US (occurrence: US)
  Receive Date: 20191211
  Receipt Date: 20191216
  Transmission Date: 20200122
  Serious: No
  Sender: FDA-Public Use
  Company Number: US-AMGEN INC.-USASP2019205999

PATIENT
  Sex: Female

DRUGS (3)
  1. AIMOVIG [Suspect]
     Active Substance: ERENUMAB-AOOE
     Indication: MIGRAINE PROPHYLAXIS
     Dosage: 140 MILLIGRAM, QMO
     Route: 065
     Dates: start: 2019, end: 2019
  2. AIMOVIG [Suspect]
     Active Substance: ERENUMAB-AOOE
     Dosage: 70 MILLIGRAM, Q2WK
     Route: 065
     Dates: start: 2019
  3. NEULASTA [Concomitant]
     Active Substance: PEGFILGRASTIM
     Dosage: UNK

REACTIONS (5)
  - Incorrect dose administered by device [Unknown]
  - Accidental exposure to product [Unknown]
  - Needle issue [Unknown]
  - Therapeutic product effect incomplete [Unknown]
  - Off label use [Unknown]

NARRATIVE: CASE EVENT DATE: 2019
